FAERS Safety Report 8760010 (Version 3)
Quarter: 2012Q4

REPORT INFORMATION
  Report Type: 
  Country: US (occurrence: US)
  Receive Date: 20120829
  Receipt Date: 20120909
  Transmission Date: 20130627
  Serious: No
  Sender: FDA-Public Use
  Company Number: US-009507513-2012SP032089

PATIENT

DRUGS (1)
  1. NUVARING [Suspect]
     Indication: CONTRACEPTION
     Dosage: 0.015/0.12MG/UNSPECIFIED BY REPORTER.
     Route: 067

REACTIONS (1)
  - Unintended pregnancy [Not Recovered/Not Resolved]
